FAERS Safety Report 7979248-5 (Version None)
Quarter: 2011Q4

REPORT INFORMATION
  Report Type: 
  Country: None (occurrence: None)
  Receive Date: 20111214
  Receipt Date: 20111214
  Transmission Date: 20120403
  Serious: No
  Sender: FDA-Public Use
  Company Number: None

PATIENT
  Age: 63 Year
  Sex: Male
  Weight: 83.914 kg

DRUGS (1)
  1. LIVALO [Suspect]
     Indication: BLOOD CHOLESTEROL INCREASED
     Dosage: 1 MG
     Route: 048
     Dates: start: 20110815, end: 20111124

REACTIONS (6)
  - ABASIA [None]
  - PAIN IN EXTREMITY [None]
  - ARTHRALGIA [None]
  - MUSCULOSKELETAL STIFFNESS [None]
  - BACK PAIN [None]
  - SYNOVIAL CYST [None]
